FAERS Safety Report 11833743 (Version 1)
Quarter: 2015Q4

REPORT INFORMATION
  Report Type: Spontaneous
  Country: ZA (occurrence: ZA)
  Receive Date: 20151214
  Receipt Date: 20151214
  Transmission Date: 20160305
  Serious: Yes (Hospitalization)
  Sender: FDA-Public Use
  Company Number: ZA-009507513-1511ZAF011226

PATIENT

DRUGS (1)
  1. CELESTONE SOLUSPAN [Suspect]
     Active Substance: BETAMETHASONE ACETATE\BETAMETHASONE SODIUM PHOSPHATE
     Indication: SPINAL PAIN
     Dosage: DOSE: 2 AMPULES PER LEVEL GIVEN UP TO 6 AMPS IF NECESSARY
     Route: 008

REACTIONS (4)
  - Paraesthesia [Unknown]
  - Neuralgia [Recovered/Resolved]
  - Injection site pain [Unknown]
  - Off label use [Unknown]

NARRATIVE: CASE EVENT DATE: 2015
